FAERS Safety Report 8570997-7 (Version None)
Quarter: 2012Q3

REPORT INFORMATION
  Report Type: 
  Country: None (occurrence: None)
  Receive Date: 20120806
  Receipt Date: 20120730
  Transmission Date: 20120928
  Serious: Yes (Hospitalization, Other)
  Sender: FDA-Public Use
  Company Number: FR-BRISTOL-MYERS SQUIBB COMPANY-16646127

PATIENT
  Age: 46 Year
  Sex: Male

DRUGS (4)
  1. IPILIMUMAB [Suspect]
     Indication: MALIGNANT MELANOMA
     Dosage: NO OF COURSE:3
     Route: 042
     Dates: start: 20120515, end: 20120627
  2. TIORFAN [Concomitant]
     Dates: start: 20120712
  3. POTASSIUM CHLORIDE [Concomitant]
     Dates: start: 20120530
  4. PREDNISOLONE [Concomitant]
     Dates: start: 20120530

REACTIONS (2)
  - HYPERTHERMIA [None]
  - CYTOLYTIC HEPATITIS [None]
